FAERS Safety Report 4979960-6 (Version None)
Quarter: 2006Q2

REPORT INFORMATION
  Report Type: 
  Country: None (occurrence: None)
  Receive Date: 20060421
  Receipt Date: 20060417
  Transmission Date: 20061013
  Serious: Yes (Hospitalization)
  Sender: FDA-Public Use
  Company Number: US-MERCK-0604USA02852

PATIENT
  Age: 53 Year
  Sex: Female
  Weight: 106 kg

DRUGS (12)
  1. VIOXX [Suspect]
     Indication: ARTHRITIS
     Route: 048
     Dates: start: 20010101, end: 20040901
  2. TOPROL-XL [Concomitant]
     Route: 065
  3. ASPIRIN [Concomitant]
     Route: 065
  4. K-DUR 10 [Concomitant]
     Route: 065
  5. ULTRACET [Concomitant]
     Route: 065
  6. INSULIN [Concomitant]
     Route: 065
  7. NITROQUICK [Concomitant]
     Route: 065
  8. EFFEXOR [Concomitant]
     Route: 065
  9. LASIX [Concomitant]
     Route: 065
  10. ZOLOFT [Concomitant]
     Route: 065
  11. GLUCOTROL [Concomitant]
     Route: 065
  12. ZOCOR [Concomitant]
     Route: 065

REACTIONS (1)
  - MYOCARDIAL INFARCTION [None]
